FAERS Safety Report 5448343-7 (Version None)
Quarter: 2007Q3

REPORT INFORMATION
  Report Type: 
  Country: None (occurrence: None)
  Receive Date: 20070911
  Receipt Date: 20070831
  Transmission Date: 20080115
  Serious: Yes (Hospitalization)
  Sender: FDA-Public Use
  Company Number: US-ABBOTT-07P-163-0415882-00

PATIENT
  Sex: Female
  Weight: 85.806 kg

DRUGS (4)
  1. SYNTHROID [Suspect]
     Indication: HYPOTHYROIDISM
     Route: 048
     Dates: start: 19910101
  2. SYNTHROID [Suspect]
     Route: 048
  3. METOPROLOL SUCCINATE [Concomitant]
     Indication: HYPERTENSION
     Route: 048
  4. NAPROXEN SODIUM [Concomitant]
     Indication: OSTEOARTHRITIS
     Route: 048

REACTIONS (4)
  - BREAST CANCER RECURRENT [None]
  - CONSTIPATION [None]
  - FATIGUE [None]
  - HAIR TEXTURE ABNORMAL [None]
